FAERS Safety Report 4406806-7 (Version None)
Quarter: 2004Q3

REPORT INFORMATION
  Report Type: 
  Country: None (occurrence: None)
  Receive Date: 20040715
  Receipt Date: 20040701
  Transmission Date: 20050211
  Serious: Yes (Hospitalization, Other)
  Sender: FDA-Public Use
  Company Number: 207581

PATIENT
  Age: 48 Year
  Sex: Female
  Weight: 68.8 kg

DRUGS (7)
  1. MABTHERA(RITUXIMAB) CONC FOR SOLUTION FOR INFUSION [Suspect]
     Indication: NON-HODGKIN'S LYMPHOMA
     Dosage: 635 MG, Q3W, INTRAVENOUS
     Route: 042
     Dates: start: 20010801
  2. MITOXANTRONE [Suspect]
     Indication: NON-HODGKIN'S LYMPHOMA
     Dosage: 2 MG, Q2W, INTRAVENOUS
     Route: 042
     Dates: start: 20010801
  3. CYCLOPHOSPHAMIDE [Suspect]
     Indication: NON-HODGKIN'S LYMPHOMA
     Dosage: 1200 MG, Q2W, INTRAVENOUS
     Route: 042
     Dates: start: 20010801
  4. ETOPOSIDE [Suspect]
     Indication: NON-HODGKIN'S LYMPHOMA
     Dosage: 250 MG, Q2W, INTRAVENOUS
     Route: 042
     Dates: start: 20010801
  5. VINCRISTINE [Suspect]
     Indication: NON-HODGKIN'S LYMPHOMA
     Dosage: 2 MG, Q2W, INTRAVENOUS
     Route: 042
     Dates: start: 20010809
  6. BLEOMYCIN [Suspect]
     Indication: NON-HODGKIN'S LYMPHOMA
     Dosage: 6 MG, Q2W, INTRAVENOUS
     Route: 042
     Dates: start: 20010809
  7. AMITRIPTYLINE HCL [Concomitant]

REACTIONS (4)
  - ACUTE MYELOID LEUKAEMIA [None]
  - CONTUSION [None]
  - DYSPNOEA EXERTIONAL [None]
  - FATIGUE [None]
